FAERS Safety Report 6904691-2 (Version None)
Quarter: 2010Q3

REPORT INFORMATION
  Report Type: 
  Country: None (occurrence: None)
  Receive Date: 20100804
  Receipt Date: 20090630
  Transmission Date: 20110219
  Serious: No
  Sender: FDA-Public Use
  Company Number: US-PFIZER INC-2009215444

PATIENT

DRUGS (1)
  1. LYRICA [Suspect]
     Dosage: 150 MG, 2X/DAY

REACTIONS (2)
  - WEIGHT DECREASED [None]
  - WEIGHT INCREASED [None]
